FAERS Safety Report 7233476-5 (Version None)
Quarter: 2011Q1

REPORT INFORMATION
  Report Type: 
  Country: None (occurrence: None)
  Receive Date: 20110119
  Receipt Date: 20110114
  Transmission Date: 20110831
  Serious: Yes (Other)
  Sender: FDA-Public Use
  Company Number: JP-B.I. PHARMACEUTICALS,INC./RIDGEFIELD-2010-BP-13297NB

PATIENT
  Sex: Female
  Weight: 47.9 kg

DRUGS (4)
  1. MICARDIS [Suspect]
     Indication: HYPERTENSION
     Dosage: 20 MG
     Route: 048
     Dates: start: 20101007, end: 20101109
  2. ALINAMIN-F [Concomitant]
     Dosage: 50 MG
     Route: 048
     Dates: start: 20040723
  3. OMEPRAL [Concomitant]
     Dosage: 20 MG
     Route: 048
     Dates: start: 20100313
  4. ATELEC [Concomitant]

REACTIONS (1)
  - VENTRICULAR EXTRASYSTOLES [None]
